FAERS Safety Report 20809017 (Version 2)
Quarter: 2022Q2

REPORT INFORMATION
  Report Type: Report from Study
  Country: US (occurrence: US)
  Receive Date: 20220510
  Receipt Date: 20220610
  Transmission Date: 20220721
  Serious: Yes (Other)
  Sender: FDA-Public Use
  Company Number: US-ABBVIE-22K-163-4387428-00

PATIENT
  Sex: Female

DRUGS (1)
  1. RINVOQ [Suspect]
     Active Substance: UPADACITINIB
     Indication: Rheumatoid arthritis
     Route: 048
     Dates: start: 20220221, end: 20220321

REACTIONS (10)
  - Hip surgery [Unknown]
  - Spinal operation [Unknown]
  - Chills [Unknown]
  - Pain in extremity [Unknown]
  - Paraesthesia [Unknown]
  - Hypoaesthesia [Unknown]
  - Dehydration [Unknown]
  - Thrombosis [Unknown]
  - Pain [Unknown]
  - Femoral artery aneurysm [Unknown]

NARRATIVE: CASE EVENT DATE: 20220101
